FAERS Safety Report 16650916 (Version 1)
Quarter: 2019Q3

REPORT INFORMATION
  Report Type: Spontaneous
  Country: US (occurrence: US)
  Receive Date: 20190731
  Receipt Date: 20190731
  Transmission Date: 20191004
  Serious: No
  Sender: FDA-Public Use
  Company Number: US-JNJFOC-20190736319

PATIENT
  Age: 20 Year
  Sex: Female

DRUGS (1)
  1. CHILDRENS MOTRIN [Suspect]
     Active Substance: IBUPROFEN
     Indication: MIGRAINE
     Dosage: 4 TEASPOONS, ONCE TO 3-4 TIMES PER WEEK
     Route: 048

REACTIONS (1)
  - Product administered to patient of inappropriate age [Unknown]
